FAERS Safety Report 10894268 (Version 1)
Quarter: 2015Q1

REPORT INFORMATION
  Report Type: Spontaneous
  Country: US (occurrence: US)
  Receive Date: 20150306
  Receipt Date: 20150306
  Transmission Date: 20150721
  Serious: Yes (Hospitalization, Other)
  Sender: FDA-Public Use
  Company Number: US-GLAXOSMITHKLINE-US2015GSK029684

PATIENT
  Age: 52 Year
  Sex: Female

DRUGS (20)
  1. INFLUENZA VACCINE UNSPECIFIED 2014-2015 SEASON [Concomitant]
     Active Substance: INFLUENZA VIRUS VACCINE
  2. COUMADIN [Concomitant]
     Active Substance: WARFARIN SODIUM
  3. NEBULIZED ALBUTEROL [Concomitant]
  4. HYDROCODONE [Concomitant]
     Active Substance: HYDROCODONE
  5. BREO ELLIPTA [Suspect]
     Active Substance: FLUTICASONE FUROATE\VILANTEROL TRIFENATATE
     Indication: BRONCHITIS CHRONIC
     Dosage: 100/25 MG
     Route: 055
     Dates: start: 201402
  6. BREO ELLIPTA [Suspect]
     Active Substance: FLUTICASONE FUROATE\VILANTEROL TRIFENATATE
     Indication: RESPIRATORY DISORDER
  7. KLONOPIN [Concomitant]
     Active Substance: CLONAZEPAM
  8. SEROQUEL [Concomitant]
     Active Substance: QUETIAPINE FUMARATE
  9. ADVAIR DISKUS [Suspect]
     Active Substance: FLUTICASONE PROPIONATE\SALMETEROL XINAFOATE
     Indication: ASTHMA
     Dosage: 500/50
     Route: 055
     Dates: start: 2002, end: 201402
  10. INFLUENZA VACCINE UNSPECIFIED 2014-2015 SEASON [Concomitant]
     Active Substance: INFLUENZA VIRUS VACCINE
     Indication: PROPHYLAXIS
     Dates: start: 201411, end: 201411
  11. AMBIEN [Concomitant]
     Active Substance: ZOLPIDEM TARTRATE
  12. BREO ELLIPTA [Suspect]
     Active Substance: FLUTICASONE FUROATE\VILANTEROL TRIFENATATE
     Indication: ASTHMA
  13. CELEXA [Concomitant]
     Active Substance: CITALOPRAM HYDROBROMIDE
  14. LAMICTAL [Concomitant]
     Active Substance: LAMOTRIGINE
  15. ALBUTEROL. [Concomitant]
     Active Substance: ALBUTEROL
  16. METFORMIN [Concomitant]
     Active Substance: METFORMIN HYDROCHLORIDE
  17. ADVAIR DISKUS [Suspect]
     Active Substance: FLUTICASONE PROPIONATE\SALMETEROL XINAFOATE
     Indication: RESPIRATORY DISORDER
  18. LAMICTAL [Suspect]
     Active Substance: LAMOTRIGINE
     Indication: POST-TRAUMATIC STRESS DISORDER
     Dosage: 150 MG, QD
     Route: 048
  19. LAMICTAL [Suspect]
     Active Substance: LAMOTRIGINE
     Indication: DYSPNOEA
  20. ABILIFY [Concomitant]
     Active Substance: ARIPIPRAZOLE

REACTIONS (5)
  - Drug ineffective [Unknown]
  - Unable to afford prescribed medication [Unknown]
  - Influenza [Recovering/Resolving]
  - Breast cancer [Recovering/Resolving]
  - Pulmonary embolism [Recovering/Resolving]

NARRATIVE: CASE EVENT DATE: 201206
